FAERS Safety Report 20058397 (Version 1)
Quarter: 2021Q4

REPORT INFORMATION
  Report Type: Report from Study
  Country: CO (occurrence: CO)
  Receive Date: 20211111
  Receipt Date: 20211111
  Transmission Date: 20220303
  Serious: Yes (Death)
  Sender: FDA-Public Use
  Company Number: CO-BAYER-2021A247497

PATIENT
  Age: 84 Year
  Sex: Female

DRUGS (1)
  1. ADEMPAS [Suspect]
     Active Substance: RIOCIGUAT
     Indication: Pulmonary hypertension
     Dosage: 0.5 MG, Q8HR
     Route: 048
     Dates: start: 20200925, end: 20211108

REACTIONS (1)
  - Death [Fatal]

NARRATIVE: CASE EVENT DATE: 20211108
